FAERS Safety Report 13763912 (Version 1)
Quarter: 2017Q3

REPORT INFORMATION
  Report Type: Spontaneous
  Country: US (occurrence: US)
  Receive Date: 20170718
  Receipt Date: 20170718
  Transmission Date: 20171127
  Serious: Yes (Hospitalization, Other)
  Sender: FDA-Public Use
  Company Number: US-SMITH AND NEPHEW, INC-2017SMT00502

PATIENT
  Age: 75 Year
  Sex: Female
  Weight: 114.29 kg

DRUGS (11)
  1. COLLAGENASE SANTYL [Suspect]
     Active Substance: COLLAGENASE CLOSTRIDIUM HISTOLYTICUM
     Indication: SKIN ULCER
     Dosage: UNK, 1X/DAY
     Route: 061
     Dates: start: 20170524, end: 20170607
  2. ^SALVE^ [Suspect]
     Active Substance: UNSPECIFIED INGREDIENT
     Indication: SKIN ULCER
     Dosage: UNK, 1X/DAY
     Route: 061
  3. METOPROLOL. [Concomitant]
     Active Substance: METOPROLOL
     Dosage: 50 MG, 2X/DAY
  4. SALINE [Suspect]
     Active Substance: SODIUM CHLORIDE
     Indication: SKIN ULCER
     Dosage: UNK, 1X/DAY
     Route: 061
  5. ELIQUIS [Concomitant]
     Active Substance: APIXABAN
     Dosage: 4 MG, 1X/DAY
  6. METFORMIN [Concomitant]
     Active Substance: METFORMIN HYDROCHLORIDE
     Dosage: 500 MG, 3X/DAY
  7. LOSARTAN. [Concomitant]
     Active Substance: LOSARTAN
     Dosage: 100 MG, 1X/DAY
  8. HYDROCHLOROTHIAZIDE. [Concomitant]
     Active Substance: HYDROCHLOROTHIAZIDE
     Dosage: 25 MG, 1X/DAY
  9. SUPER B-COMPLEX [Concomitant]
     Dosage: UNK, 1X/DAY
  10. ZOLOFT [Concomitant]
     Active Substance: SERTRALINE HYDROCHLORIDE
     Dosage: 50 MG, 1X/DAY
  11. AQUACEL SILVER [Suspect]
     Active Substance: CARBOXYMETHYLCELLULOSE SODIUM\SILVER
     Indication: SKIN ULCER
     Dosage: UNK, 1X/DAY
     Route: 061

REACTIONS (20)
  - Skin exfoliation [Not Recovered/Not Resolved]
  - Drug dose omission [Recovered/Resolved]
  - Asthenia [Unknown]
  - Chills [Unknown]
  - Dizziness [Unknown]
  - Dyspnoea [Unknown]
  - Chest pain [Not Recovered/Not Resolved]
  - Thyroid disorder [Unknown]
  - Neck mass [Unknown]
  - Insomnia [Not Recovered/Not Resolved]
  - Vomiting [Unknown]
  - Ear pain [Unknown]
  - Diarrhoea [Unknown]
  - Malaise [Not Recovered/Not Resolved]
  - Dysphonia [Not Recovered/Not Resolved]
  - Pulmonary pain [Not Recovered/Not Resolved]
  - Atrial fibrillation [Unknown]
  - Stomatitis [Unknown]
  - Speech disorder [Not Recovered/Not Resolved]
  - Eating disorder [Unknown]

NARRATIVE: CASE EVENT DATE: 2017
